FAERS Safety Report 10552443 (Version 1)
Quarter: 2014Q4

REPORT INFORMATION
  Report Type: Spontaneous
  Country: US (occurrence: None)
  Receive Date: 20141023
  Receipt Date: 20141023
  Transmission Date: 20150529
  Serious: No
  Sender: FDA-Public Use
  Company Number: AP356-01193-SPO-US

PATIENT
  Sex: Female

DRUGS (3)
  1. DIMETHYL SULFONE\GLUCOSAMINE SULFATE [Concomitant]
     Active Substance: DIMETHYL SULFONE\GLUCOSAMINE SULFATE
  2. ALEVE (NAPROXEN SODIUM) [Concomitant]
  3. BELVIQ [Suspect]
     Active Substance: LORCASERIN HYDROCHLORIDE
     Indication: WEIGHT DECREASED
     Route: 048
     Dates: start: 20140805

REACTIONS (2)
  - Constipation [None]
  - Sleep disorder [None]

NARRATIVE: CASE EVENT DATE: 20140806
